FAERS Safety Report 9268845 (Version 2)
Quarter: 2013Q2

REPORT INFORMATION
  Report Type: Spontaneous
  Country: US (occurrence: US)
  Receive Date: 20130502
  Receipt Date: 20130606
  Transmission Date: 20140414
  Serious: No
  Sender: FDA-Public Use
  Company Number: US-009507513-1304USA013568

PATIENT
  Age: 84 Year
  Sex: Female

DRUGS (1)
  1. ZIOPTAN [Suspect]
     Indication: GLAUCOMA
     Dosage: 1 GTT EACH EYE
     Route: 047
     Dates: start: 20120807, end: 201212

REACTIONS (2)
  - Rash [Recovered/Resolved]
  - Discomfort [Unknown]
